FAERS Safety Report 21928225 (Version 2)
Quarter: 2023Q2

REPORT INFORMATION
  Report Type: Spontaneous
  Country: US (occurrence: US)
  Receive Date: 20230130
  Receipt Date: 20230421
  Transmission Date: 20230722
  Serious: No
  Sender: FDA-Public Use
  Company Number: US-LUNDBECK-DKLU3057350

PATIENT
  Age: 35 Year
  Sex: Female
  Weight: 103 kg

DRUGS (3)
  1. NORTHERA [Suspect]
     Active Substance: DROXIDOPA
     Indication: Postural orthostatic tachycardia syndrome
     Route: 048
  2. TOPAMAX [Suspect]
     Active Substance: TOPIRAMATE
     Indication: Product used for unknown indication
     Route: 065
  3. TOPAMAX [Suspect]
     Active Substance: TOPIRAMATE
     Route: 065

REACTIONS (3)
  - Malaise [Recovered/Resolved]
  - Paraesthesia [Recovered/Resolved]
  - Product dose omission issue [Recovered/Resolved]

NARRATIVE: CASE EVENT DATE: 20230101
